FAERS Safety Report 7506293-6 (Version None)
Quarter: 2011Q2

REPORT INFORMATION
  Report Type: 
  Country: None (occurrence: None)
  Receive Date: 20110526
  Receipt Date: 20110517
  Transmission Date: 20111010
  Serious: Yes (Hospitalization)
  Sender: FDA-Public Use
  Company Number: FR-KINGPHARMUSA00001-K201100603

PATIENT
  Age: 59 Year
  Sex: Male

DRUGS (15)
  1. CELLCEPT [Concomitant]
  2. ASPIRIN [Concomitant]
  3. SODIUM BICARBONATE [Concomitant]
  4. ALTACE [Suspect]
     Dosage: 2.5 MG, BID
     Route: 065
  5. IRBESARTAN [Suspect]
     Dosage: 75 MG, QD
  6. ATORVASTATIN [Concomitant]
  7. PANTOPRAZOLE SODIUM [Concomitant]
  8. TIORFAN [Concomitant]
  9. HYDROCHLOROTHIAZIDE [Suspect]
  10. ALUMINIUM HYDROXIDE-MAGNESIUM CARBONATE GEL/ALUMINIUM MAGNESIUM SILICA [Concomitant]
  11. PROGRAF [Concomitant]
  12. ALLOPURINOL [Concomitant]
  13. DELURSAN [Concomitant]
  14. UVEDOSE [Concomitant]
  15. ROCALTROL [Concomitant]

REACTIONS (4)
  - ANURIA [None]
  - CREPITATIONS [None]
  - DEHYDRATION [None]
  - RENAL FAILURE ACUTE [None]
